FAERS Safety Report 24569041 (Version 1)
Quarter: 2024Q4

REPORT INFORMATION
  Report Type: Report from Study
  Country: EG (occurrence: EG)
  Receive Date: 20241031
  Receipt Date: 20241031
  Transmission Date: 20250115
  Serious: Yes (Death, Hospitalization)
  Sender: ABBVIE
  Company Number: EG-ABBVIE-5985427

PATIENT
  Age: 57 Year
  Sex: Female

DRUGS (1)
  1. HUMIRA [Suspect]
     Active Substance: ADALIMUMAB
     Indication: Rheumatoid arthritis
     Route: 058
     Dates: start: 2023, end: 2023

REACTIONS (4)
  - Death [Fatal]
  - Blood glucose increased [Unknown]
  - Intermenstrual bleeding [Unknown]
  - Coma [Unknown]

NARRATIVE: CASE EVENT DATE: 20230101
